FAERS Safety Report 9726349 (Version 1)
Quarter: 2013Q4

REPORT INFORMATION
  Report Type: Spontaneous
  Country: GB (occurrence: None)
  Receive Date: 20131129
  Receipt Date: 20131129
  Transmission Date: 20140711
  Serious: Yes (Disabling)
  Sender: FDA-Public Use
  Company Number: AUR-APL-2013-09712

PATIENT
  Age: 75 Year
  Sex: Male
  Weight: 76.2 kg

DRUGS (6)
  1. DONEPEZIL [Suspect]
     Indication: DEMENTIA ALZHEIMER^S TYPE
     Route: 048
     Dates: start: 201309, end: 20131028
  2. ADALAT LA (NIFEDIPINE) [Concomitant]
  3. CEFALEXIN (CEFALEXIN) [Concomitant]
  4. CLOPIDOGREL (CLOPIDOGREL) [Concomitant]
  5. LIPITOR (ATORVASTATIN CALCIUM) [Concomitant]
  6. PERINDOPRIL (PERINODOPRIL) [Concomitant]

REACTIONS (2)
  - Emotional distress [None]
  - Libido increased [None]
